FAERS Safety Report 7836930-8 (Version None)
Quarter: 2011Q4

REPORT INFORMATION
  Report Type: 
  Country: None (occurrence: None)
  Receive Date: 20111024
  Receipt Date: 20110818
  Transmission Date: 20120403
  Serious: No
  Sender: FDA-Public Use
  Company Number: US-ABBOTT-11P-163-0848431-00

PATIENT
  Sex: Female
  Weight: 52.21 kg

DRUGS (3)
  1. PROGESTERONE [Concomitant]
     Indication: PRODUCT USED FOR UNKNOWN INDICATION
  2. LUPRON DEPOT [Suspect]
     Route: 050
     Dates: start: 20110815
  3. LUPRON DEPOT [Suspect]
     Indication: ENDOMETRIOSIS
     Dosage: 4 REFILLS
     Route: 050
     Dates: start: 20110501, end: 20110629

REACTIONS (6)
  - VULVOVAGINAL DISCOMFORT [None]
  - INCREASED TENDENCY TO BRUISE [None]
  - URINARY TRACT INFECTION [None]
  - INJECTION SITE HAEMATOMA [None]
  - VULVOVAGINAL PAIN [None]
  - DRUG DOSE OMISSION [None]
